FAERS Safety Report 6020339-6 (Version None)
Quarter: 2008Q4

REPORT INFORMATION
  Report Type: 
  Country: None (occurrence: None)
  Receive Date: 20081223
  Receipt Date: 20081223
  Transmission Date: 20090506
  Serious: No
  Sender: FDA-Public Use
  Company Number: None

PATIENT
  Age: 73 Year
  Sex: Male

DRUGS (1)
  1. AMLODIPINE BESYLATE [Suspect]
     Indication: BLOOD PRESSURE
     Dosage: 5MG ONE TABLET DAILY PO (DURATION: PAST YEAR AT LEAST TO PRESENT)
     Route: 048

REACTIONS (1)
  - PRODUCT QUALITY ISSUE [None]
